FAERS Safety Report 9206129 (Version 1)
Quarter: 2013Q1

REPORT INFORMATION
  Report Type: Spontaneous
  Country: US (occurrence: None)
  Receive Date: 20120731
  Receipt Date: 20120731
  Transmission Date: 20140127
  Serious: No
  Sender: FDA-Public Use
  Company Number: US20111004126

PATIENT
  Age: 70 Year
  Sex: Female
  Weight: 65.8 kg

DRUGS (3)
  1. BYETTA (EXENATIDE) PEN, DISPOSABLE [Suspect]
     Route: 058
  2. EXENATIDE PEN, DISPOSABLE DEVICE [Concomitant]
  3. LANTUS (INSULIN GLARGINE) [Concomitant]

REACTIONS (2)
  - Weight decreased [None]
  - Nausea [None]
